FAERS Safety Report 8223029-4 (Version None)
Quarter: 2012Q1

REPORT INFORMATION
  Report Type: 
  Country: None (occurrence: None)
  Receive Date: 20120320
  Receipt Date: 20120306
  Transmission Date: 20120608
  Serious: Yes (Death, Hospitalization)
  Sender: FDA-Public Use
  Company Number: US-ASTRAZENECA-2012SE17517

PATIENT
  Age: 6 Year
  Sex: Female

DRUGS (12)
  1. GANCICLOVIR [Concomitant]
     Route: 042
  2. GAMMA GLOBULINE [Concomitant]
  3. CIDOFOVIR [Concomitant]
  4. FOSCARNET [Suspect]
     Indication: ENCEPHALITIS CYTOMEGALOVIRUS
     Route: 042
  5. GANCICLOVIR [Concomitant]
     Route: 042
  6. GANCICLOVIR [Concomitant]
     Route: 042
  7. PROBENECID [Concomitant]
     Route: 048
  8. FOSCARNET [Suspect]
     Route: 042
  9. HUMAN CYTOMEGALOVIRUS IMMUNOGLOBULINS [Concomitant]
  10. CIDOFOVIR [Concomitant]
  11. FOSCARNET [Suspect]
     Route: 042
  12. GRANULOCYTE MACROPHAGE COLONY STIM FACTOR [Concomitant]

REACTIONS (16)
  - MULTI-ORGAN FAILURE [None]
  - PNEUMONIA [None]
  - HEADACHE [None]
  - CIRCULATORY COLLAPSE [None]
  - ACUTE SINUSITIS [None]
  - ABDOMINAL DISTENSION [None]
  - CREATININE RENAL CLEARANCE DECREASED [None]
  - GASTROINTESTINAL HAEMORRHAGE [None]
  - RENAL ABSCESS [None]
  - WHITE BLOOD CELL COUNT DECREASED [None]
  - HYPERTENSION [None]
  - PANCYTOPENIA [None]
  - HYDROCEPHALUS [None]
  - IMMUNOSUPPRESSION [None]
  - PYREXIA [None]
  - GRAND MAL CONVULSION [None]
